FAERS Safety Report 5776267-4 (Version None)
Quarter: 2008Q2

REPORT INFORMATION
  Report Type: 
  Country: None (occurrence: None)
  Receive Date: 20080616
  Receipt Date: 20080611
  Transmission Date: 20081010
  Serious: Yes (Other)
  Sender: FDA-Public Use
  Company Number: CHPA2008US09696

PATIENT
  Age: 18 Year
  Sex: Male

DRUGS (1)
  1. EX-LAX REG STR CHOCOLATED LAX PCS SEN (NCH)(SENNA GLYCOSIDES (CA SALT [Suspect]
     Dosage: 1080 MG, ONCE/SINGLE, ORAL
     Route: 048
     Dates: start: 20080609, end: 20080610

REACTIONS (2)
  - INCORRECT DOSE ADMINISTERED [None]
  - RECTAL HAEMORRHAGE [None]
